FAERS Safety Report 20508688 (Version 1)
Quarter: 2022Q1

REPORT INFORMATION
  Report Type: Spontaneous
  Country: JP (occurrence: JP)
  Receive Date: 20220223
  Receipt Date: 20220223
  Transmission Date: 20220424
  Serious: Yes (Other)
  Sender: FDA-Public Use
  Company Number: JP-002147023-NVSJ2022JP003072

PATIENT
  Sex: Male

DRUGS (2)
  1. VOLTAREN [Suspect]
     Active Substance: DICLOFENAC SODIUM
     Indication: Product used for unknown indication
     Dosage: UNK
     Route: 048
  2. LIDOCAINE\TRIBENOSIDE [Concomitant]
     Active Substance: LIDOCAINE\TRIBENOSIDE
     Indication: Haemorrhoids
     Dosage: UNK
     Route: 054

REACTIONS (1)
  - Gastric ulcer [Unknown]
